FAERS Safety Report 7214861-4 (Version None)
Quarter: 2011Q1

REPORT INFORMATION
  Report Type: 
  Country: None (occurrence: None)
  Receive Date: 20110107
  Receipt Date: 20100408
  Transmission Date: 20110831
  Serious: No
  Sender: FDA-Public Use
  Company Number: A0854314A

PATIENT
  Sex: Male

DRUGS (2)
  1. BENICAR [Concomitant]
     Indication: BLOOD PRESSURE
     Route: 065
  2. LOVAZA [Suspect]
     Dosage: 2G TWICE PER DAY
     Route: 065

REACTIONS (1)
  - HYPOTENSION [None]
